FAERS Safety Report 25310147 (Version 4)
Quarter: 2025Q2

REPORT INFORMATION
  Report Type: Spontaneous
  Country: US (occurrence: US)
  Receive Date: 20250514
  Receipt Date: 20250612
  Transmission Date: 20250716
  Serious: No
  Sender: ROCHE
  Company Number: US-ROCHE-10000282076

PATIENT
  Age: 8 Year
  Sex: Male
  Weight: 38.1 kg

DRUGS (3)
  1. HEMLIBRA [Suspect]
     Active Substance: EMICIZUMAB-KXWH
     Indication: Factor VIII deficiency
     Dosage: STRENGTH: 105MG/ 0.7ML
     Route: 058
     Dates: start: 202502
  2. LIDOCAIN/PRIOLOCAIN CRM [Concomitant]
  3. SODIUM CHLORIDE [Concomitant]
     Active Substance: SODIUM CHLORIDE

REACTIONS (7)
  - Haemorrhage [Unknown]
  - Haemorrhage [Recovered/Resolved]
  - Arthralgia [Unknown]
  - Limb injury [Unknown]
  - Intermenstrual bleeding [Unknown]
  - Haemorrhage [Unknown]
  - Haemorrhage [Unknown]

NARRATIVE: CASE EVENT DATE: 20250427
